FAERS Safety Report 19980581 (Version 2)
Quarter: 2021Q4

REPORT INFORMATION
  Report Type: Report from Study
  Country: FR (occurrence: FR)
  Receive Date: 20211021
  Receipt Date: 20211026
  Transmission Date: 20220303
  Serious: Yes (Death)
  Sender: FDA-Public Use
  Company Number: FR-CELGENE-FRA-20211004973

PATIENT
  Age: 82 Year
  Sex: Female
  Weight: 48 kg

DRUGS (11)
  1. ISTODAX [Suspect]
     Active Substance: ROMIDEPSIN
     Indication: Angioimmunoblastic T-cell lymphoma
     Route: 065
     Dates: start: 20200722
  2. UNSPECIFIED INGREDIENT [Concomitant]
     Active Substance: UNSPECIFIED INGREDIENT
     Indication: Product used for unknown indication
     Route: 065
  3. CYCLOPHOSPHAMIDE [Concomitant]
     Active Substance: CYCLOPHOSPHAMIDE
     Indication: Angioimmunoblastic T-cell lymphoma
     Route: 065
     Dates: start: 2017
  4. DOXORUBICIN HYDROCHLORIDE [Concomitant]
     Active Substance: DOXORUBICIN HYDROCHLORIDE
     Indication: Angioimmunoblastic T-cell lymphoma
     Route: 065
     Dates: start: 2017
  5. ONCOVIN [Concomitant]
     Active Substance: VINCRISTINE SULFATE
     Indication: Angioimmunoblastic T-cell lymphoma
     Route: 065
     Dates: start: 2017
  6. PREDNISONE [Concomitant]
     Active Substance: PREDNISONE
     Indication: Angioimmunoblastic T-cell lymphoma
     Route: 065
     Dates: start: 2017
  7. RITUXIMAB [Concomitant]
     Active Substance: RITUXIMAB
     Indication: Angioimmunoblastic T-cell lymphoma
     Route: 065
     Dates: start: 2017
  8. DEXAMETHASONE [Concomitant]
     Active Substance: DEXAMETHASONE
     Indication: Angioimmunoblastic T-cell lymphoma
     Route: 065
     Dates: start: 2017
  9. CYTARABINE [Concomitant]
     Active Substance: CYTARABINE
     Indication: Angioimmunoblastic T-cell lymphoma
     Route: 065
     Dates: start: 2017
  10. OXALIPLATIN [Concomitant]
     Active Substance: OXALIPLATIN
     Indication: Angioimmunoblastic T-cell lymphoma
     Route: 065
     Dates: start: 2017
  11. IFOSFAMIDE [Concomitant]
     Active Substance: IFOSFAMIDE
     Indication: Angioimmunoblastic T-cell lymphoma
     Route: 065
     Dates: start: 2018

REACTIONS (1)
  - COVID-19 [Fatal]
